FAERS Safety Report 12146241 (Version 1)
Quarter: 2016Q1

REPORT INFORMATION
  Report Type: Spontaneous
  Country: US (occurrence: US)
  Receive Date: 20160304
  Receipt Date: 20160304
  Transmission Date: 20160526
  Serious: No
  Sender: FDA-Public Use
  Company Number: US-PERRIGO-16US000394

PATIENT
  Age: 70 Year
  Sex: Male
  Weight: 96.15 kg

DRUGS (2)
  1. NAPROXEN SODIUM 220 MG 368 [Suspect]
     Active Substance: NAPROXEN SODIUM
     Dosage: 220 MG, EVERY 8 HOURS, QD
     Route: 048
     Dates: start: 20160114
  2. NAPROXEN SODIUM 220 MG 368 [Suspect]
     Active Substance: NAPROXEN SODIUM
     Indication: ARTHRALGIA
     Dosage: 220 TO 440 MG, EVERY 12 HOURS, QD
     Route: 048
     Dates: start: 20160110, end: 20160113

REACTIONS (2)
  - Drug effect incomplete [Unknown]
  - Incorrect dose administered [Recovered/Resolved]

NARRATIVE: CASE EVENT DATE: 20160110
